FAERS Safety Report 15016848 (Version 2)
Quarter: 2018Q3

REPORT INFORMATION
  Report Type: Spontaneous
  Country: US (occurrence: US)
  Receive Date: 20180615
  Receipt Date: 20180704
  Transmission Date: 20181010
  Serious: No
  Sender: FDA-Public Use
  Company Number: US-B.I. PHARMACEUTICALS,INC./RIDGEFIELD-2018-BI-030222

PATIENT
  Sex: Female

DRUGS (1)
  1. COMBIVENT [Suspect]
     Active Substance: ALBUTEROL SULFATE\IPRATROPIUM BROMIDE
     Indication: PRODUCT USED FOR UNKNOWN INDICATION
     Dosage: NR; STRENGTH: 20 MCG / 100 MCG; FORM: INHALATION SPRAY? ADMIN? NR ?ACTION: NOT REPORTED
     Route: 055

REACTIONS (2)
  - Dizziness [Unknown]
  - Rhinorrhoea [Unknown]
